FAERS Safety Report 5887901-2 (Version None)
Quarter: 2008Q3

REPORT INFORMATION
  Report Type: 
  Country: None (occurrence: None)
  Receive Date: 20080918
  Receipt Date: 20080912
  Transmission Date: 20090109
  Serious: Yes (Other)
  Sender: FDA-Public Use
  Company Number: A0747264A

PATIENT
  Age: 62 Year
  Sex: Female

DRUGS (7)
  1. LAMICTAL [Suspect]
     Indication: BIPOLAR DISORDER
     Dosage: 200MG PER DAY
     Route: 048
     Dates: start: 20070601
  2. SYNTHROID [Concomitant]
  3. CYTOMEL [Concomitant]
  4. FOSAMAX PLUS D [Concomitant]
  5. CALCIUM GLUCONATE [Concomitant]
  6. MULTI-VITAMIN [Concomitant]
  7. FISH OIL [Concomitant]

REACTIONS (9)
  - ABDOMINAL DISTENSION [None]
  - ARTHRALGIA [None]
  - BACK PAIN [None]
  - DEMENTIA ALZHEIMER'S TYPE [None]
  - FOOD CRAVING [None]
  - INTERVERTEBRAL DISC PROTRUSION [None]
  - MENTAL IMPAIRMENT [None]
  - OSTEOARTHRITIS [None]
  - PARANOIA [None]
